FAERS Safety Report 9380613 (Version 2)
Quarter: 2013Q3

REPORT INFORMATION
  Report Type: Report from Study
  Country: CA (occurrence: CA)
  Receive Date: 20130702
  Receipt Date: 20130813
  Transmission Date: 20140515
  Serious: Yes (Other)
  Sender: FDA-Public Use
  Company Number: CA-ABBOTT-11P-028-0718884-00

PATIENT
  Age: 48 Year
  Sex: Female
  Weight: 77.18 kg

DRUGS (4)
  1. HUMIRA 40 MG/0.8 ML PEN [Suspect]
     Indication: CROHN^S DISEASE
     Dosage: LATEST DOSE: 10 APR 2013
     Route: 058
     Dates: start: 20101129, end: 20130522
  2. HUMIRA 40 MG/0.8 ML PEN [Suspect]
     Dates: start: 20130626
  3. HUMIRA [Suspect]
     Indication: CROHN^S DISEASE
     Route: 058
  4. ABILIFY [Concomitant]
     Indication: DEPRESSION
     Route: 048
     Dates: start: 20110322

REACTIONS (14)
  - Carpal tunnel syndrome [Recovering/Resolving]
  - Carpal tunnel syndrome [Not Recovered/Not Resolved]
  - Hypoaesthesia [Not Recovered/Not Resolved]
  - Diarrhoea [Recovered/Resolved]
  - Diarrhoea [Recovered/Resolved]
  - Pain in extremity [Recovered/Resolved]
  - Joint stiffness [Recovered/Resolved]
  - Pain in extremity [Recovering/Resolving]
  - Joint stiffness [Recovering/Resolving]
  - Injection site erythema [Recovered/Resolved]
  - Tinnitus [Not Recovered/Not Resolved]
  - Scar [Not Recovered/Not Resolved]
  - Procedural pain [Not Recovered/Not Resolved]
  - Frequent bowel movements [Not Recovered/Not Resolved]
